FAERS Safety Report 7759856-7 (Version None)
Quarter: 2011Q3

REPORT INFORMATION
  Report Type: 
  Country: None (occurrence: None)
  Receive Date: 20110919
  Receipt Date: 20110908
  Transmission Date: 20111222
  Serious: Yes (Other)
  Sender: FDA-Public Use
  Company Number: US-JNJFOC-20110709602

PATIENT
  Sex: Male
  Weight: 115.67 kg

DRUGS (4)
  1. DICLOFENAC SODIUM [Concomitant]
  2. STELARA [Suspect]
     Indication: PSORIASIS
     Route: 058
     Dates: start: 20101013, end: 20110201
  3. REMICADE [Suspect]
     Indication: PSORIASIS
     Route: 042
  4. DIOVAN [Concomitant]

REACTIONS (1)
  - B-CELL LYMPHOMA [None]
